FAERS Safety Report 10062971 (Version 2)
Quarter: 2014Q2

REPORT INFORMATION
  Report Type: Spontaneous
  Country: FR (occurrence: FR)
  Receive Date: 20140407
  Receipt Date: 20140508
  Transmission Date: 20141212
  Serious: Yes (Other)
  Sender: FDA-Public Use
  Company Number: FR-PFIZER INC-2014094827

PATIENT
  Age: 51 Year
  Sex: Female

DRUGS (11)
  1. PANTOPRAZOLE [Suspect]
  2. TRAMADOL HYDROCHLORIDE [Suspect]
  3. BI PROFENID [Suspect]
  4. DOLIPRANE [Suspect]
  5. MIANSERIN [Suspect]
  6. SKENAN LP [Suspect]
  7. ACTISKENAN [Suspect]
  8. LAROXYL [Suspect]
  9. VERSATIS [Suspect]
  10. BROMAZEPAM [Suspect]
  11. THIOCOLCHICOSIDE [Suspect]

REACTIONS (5)
  - Haemorrhage [Not Recovered/Not Resolved]
  - Diarrhoea [Not Recovered/Not Resolved]
  - Faeces hard [Not Recovered/Not Resolved]
  - Constipation [Not Recovered/Not Resolved]
  - Skin exfoliation [Not Recovered/Not Resolved]
